FAERS Safety Report 13777945 (Version 1)
Quarter: 2017Q3

REPORT INFORMATION
  Report Type: Spontaneous
  Country: FR (occurrence: FR)
  Receive Date: 20170721
  Receipt Date: 20170721
  Transmission Date: 20171127
  Serious: Yes (Other)
  Sender: FDA-Public Use
  Company Number: FR-BAYER-2017-134295

PATIENT
  Age: 37 Year
  Sex: Female

DRUGS (2)
  1. MIRENA [Suspect]
     Active Substance: LEVONORGESTREL
     Indication: CONTRACEPTION
     Dosage: 20 MCG/24HR, CONT
     Route: 015
     Dates: start: 20170124
  2. MIRENA [Suspect]
     Active Substance: LEVONORGESTREL
     Indication: MENORRHAGIA

REACTIONS (9)
  - Mood swings [Unknown]
  - Paraesthesia [Unknown]
  - Memory impairment [Unknown]
  - Disturbance in attention [Unknown]
  - Hypertension [Unknown]
  - Migraine [Unknown]
  - Back pain [Unknown]
  - Loss of libido [Unknown]
  - Thyroid mass [Unknown]

NARRATIVE: CASE EVENT DATE: 2017
